FAERS Safety Report 9125227 (Version 1)
Quarter: 2013Q1

REPORT INFORMATION
  Report Type: Spontaneous
  Country: BR (occurrence: BR)
  Receive Date: 20130227
  Receipt Date: 20130227
  Transmission Date: 20140127
  Serious: Yes (Hospitalization)
  Sender: FDA-Public Use
  Company Number: BR-ASTRAZENECA-2013SE11741

PATIENT
  Age: 90 Year
  Sex: Female
  Weight: 60 kg

DRUGS (10)
  1. NEXIUM [Suspect]
     Indication: GASTRITIS PROPHYLAXIS
     Route: 048
  2. CITONEURIN [Concomitant]
     Indication: PAIN IN EXTREMITY
     Dosage: MONTHLY
     Route: 030
  3. FOLIC ACID [Concomitant]
     Dosage: DAILY
     Route: 048
  4. OS-CAL D [Concomitant]
     Route: 048
  5. MUVINOR [Concomitant]
     Indication: FUNCTIONAL GASTROINTESTINAL DISORDER
     Route: 048
  6. BENTYL [Concomitant]
     Indication: DEPRESSION
     Route: 048
  7. ERANZ [Concomitant]
     Indication: DEMENTIA ALZHEIMER^S TYPE
     Route: 048
  8. VYTORIN [Concomitant]
     Route: 048
     Dates: start: 2007
  9. DEPAKOTE [Concomitant]
     Indication: CONVULSION
     Route: 048
     Dates: start: 2011
  10. GLIFAGE XR [Concomitant]
     Indication: DIABETES MELLITUS
     Route: 048
     Dates: start: 201202

REACTIONS (1)
  - Myocardial infarction [Recovered/Resolved]
